FAERS Safety Report 10175522 (Version 1)
Quarter: 2014Q2

REPORT INFORMATION
  Report Type: Spontaneous
  Country: US (occurrence: US)
  Receive Date: 20140516
  Receipt Date: 20140516
  Transmission Date: 20141212
  Serious: Yes (Death, Other)
  Sender: FDA-Public Use
  Company Number: PHHY2014US056407

PATIENT
  Age: 15 Year
  Sex: Female

DRUGS (4)
  1. METHYLPREDNISOLONE [Suspect]
  2. NEVIRAPINE [Concomitant]
  3. EMTRICITABINE W/TENOFOVIR [Concomitant]
  4. RALTEGRAVIR [Concomitant]

REACTIONS (4)
  - Immune reconstitution inflammatory syndrome [Fatal]
  - Generalised tonic-clonic seizure [Unknown]
  - Altered state of consciousness [Unknown]
  - Asthenia [Unknown]
